FAERS Safety Report 8988397 (Version 4)
Quarter: 2013Q2

REPORT INFORMATION
  Report Type: Spontaneous
  Country: AU (occurrence: None)
  Receive Date: 20121218
  Receipt Date: 20130606
  Transmission Date: 20140414
  Serious: Yes (Hospitalization)
  Sender: FDA-Public Use
  Company Number: ACO_33288_2012

PATIENT
  Age: 62 Year
  Sex: Male

DRUGS (9)
  1. FAMPRIDINE-SR [Suspect]
     Indication: MULTIPLE SCLEROSIS
     Route: 048
     Dates: start: 20120710
  2. ASPIRIN (ACETYLSALICYCLIC ACID) [Concomitant]
     Dates: start: 20080826, end: 20121119
  3. SIMVASTATIN (SIMVASTATIN) [Concomitant]
     Dates: start: 20090115
  4. AMITRIPTYLINE (AMITRIPTYLINE HYDROCHLORIDE) [Concomitant]
     Dates: start: 20111009
  5. REBIF (INTERFERON BETA-1A) [Concomitant]
     Dates: start: 20091130
  6. VITAMIN D (VITAMIN D) [Concomitant]
  7. CEPHALEXIN (CEFALEXIN) [Concomitant]
     Dates: start: 20121002
  8. MOVICOL [Concomitant]
     Dates: start: 20120911
  9. DOCUSATE SODIUM AND SENNA (DOCUSATE SODIUM, SENNOSIDE A+B) [Concomitant]
     Dates: start: 20120101

REACTIONS (6)
  - Urinary retention [None]
  - Urinary tract infection [None]
  - Transurethral prostatectomy [None]
  - Benign prostatic hyperplasia [None]
  - Post procedural haematuria [None]
  - Haematuria [None]
